FAERS Safety Report 13849943 (Version 1)
Quarter: 2017Q3

REPORT INFORMATION
  Report Type: Spontaneous
  Country: US (occurrence: US)
  Receive Date: 20170809
  Receipt Date: 20170809
  Transmission Date: 20171127
  Serious: No
  Sender: FDA-Public Use
  Company Number: US-ASTRAZENECA-2017SE80434

PATIENT
  Sex: Male
  Weight: 113.4 kg

DRUGS (3)
  1. XIGDUO XR [Suspect]
     Active Substance: DAPAGLIFLOZIN PROPANEDIOL\METFORMIN HYDROCHLORIDE
     Indication: TYPE 2 DIABETES MELLITUS
     Dosage: DAILY
     Route: 048
     Dates: start: 2016
  2. ENALAPRIL [Concomitant]
     Active Substance: ENALAPRIL
     Route: 048
  3. ZANEX [Concomitant]
     Route: 048

REACTIONS (3)
  - Feeling abnormal [Unknown]
  - Fatigue [Unknown]
  - Medication residue present [Unknown]
